FAERS Safety Report 5551187-9 (Version None)
Quarter: 2007Q4

REPORT INFORMATION
  Report Type: 
  Country: None (occurrence: None)
  Receive Date: 20071127
  Receipt Date: 20061031
  Transmission Date: 20080405
  Serious: Yes (Other)
  Sender: FDA-Public Use
  Company Number: CHPA2006US10947

PATIENT
  Age: 25 Year
  Sex: Male
  Weight: 99.8 kg

DRUGS (2)
  1. NICOTINE [Suspect]
     Indication: SMOKING CESSATION THERAPY
     Dosage: 21  MG, ONCE/SINGLE, TRANSDERMAL
     Route: 062
     Dates: start: 20061030
  2. LISINOPRIL [Concomitant]

REACTIONS (2)
  - HEADACHE [None]
  - HYPERTENSION [None]
